FAERS Safety Report 9553935 (Version 1)
Quarter: 2013Q3

REPORT INFORMATION
  Report Type: Spontaneous
  Country: US (occurrence: None)
  Receive Date: 20130913
  Receipt Date: 20130913
  Transmission Date: 20140515
  Serious: No
  Sender: FDA-Public Use
  Company Number: 1000045968

PATIENT
  Age: 68 Year
  Sex: Female

DRUGS (10)
  1. DALIRESP [Suspect]
     Indication: CHRONIC OBSTRUCTIVE PULMONARY DISEASE
     Dosage: 500MCG (500 MCG, 1 IN 1 D), ORAL
     Route: 048
     Dates: start: 20130612, end: 20130613
  2. MEDROL (METHYLPREDNISOLONE) (METHYLPREDNISOLONE) [Concomitant]
  3. AVELOX (MOXIFLOXACIN HYDROCHLORIDE) (MOXIFLOXACIN HYDROCHLORIDE) [Concomitant]
  4. VENTOLIN HFA (SALBUTAMOL SULFATE) (SALBUTAMOL SULFATE) [Concomitant]
  5. SPIRIVA (TIOGTROPIUM BROMIDE) (TIOTROPIUM BROMIDE) [Concomitant]
  6. VERAPAMIL )VERAPAMIL) [Concomitant]
  7. ZOLPIDEM (ZOLPIDEM) (ZOLPIDEM) [Concomitant]
  8. IMITREX (SUMATRIPTAN) (SUMATRIPTAN) [Concomitant]
  9. XANAX [Concomitant]
  10. ALBUTEROL SULFATE (SALBUTAMOL SULFATE) (SALBUTAMOL SULFATE) [Concomitant]

REACTIONS (3)
  - Agitation [None]
  - Crying [None]
  - Conversion disorder [None]
